FAERS Safety Report 8991011 (Version 2)
Quarter: 2013Q1

REPORT INFORMATION
  Report Type: Spontaneous
  Country: GB (occurrence: None)
  Receive Date: 20121220
  Receipt Date: 20130102
  Transmission Date: 20140127
  Serious: Yes (Hospitalization, Other)
  Sender: FDA-Public Use
  Company Number: 1536285

PATIENT
  Age: 14 Year
  Sex: Female
  Weight: 57 kg

DRUGS (12)
  1. METHOTREXATE [Suspect]
     Indication: OSTEOSARCOMA
     Route: 042
  2. FILGRASTIM [Concomitant]
  3. DOXORUBICIN [Concomitant]
  4. CISPLATIN [Concomitant]
  5. LEVOMEPROMAZINE [Concomitant]
  6. ONDANSETRON [Concomitant]
  7. LANSOPRAZOLE [Concomitant]
  8. NORETHISTERONE [Concomitant]
  9. METOCLOPRAMIDE [Concomitant]
  10. OXYCODONE [Concomitant]
  11. DOCUSATE [Concomitant]
  12. CHLORPHENAMINE [Concomitant]

REACTIONS (4)
  - Pleurisy [None]
  - Encephalopathy [None]
  - Hemiparesis [None]
  - Transient ischaemic attack [None]
